FAERS Safety Report 8197415-5 (Version None)
Quarter: 2012Q1

REPORT INFORMATION
  Report Type: 
  Country: None (occurrence: None)
  Receive Date: 20120309
  Receipt Date: 20120302
  Transmission Date: 20120608
  Serious: Yes (Hospitalization)
  Sender: FDA-Public Use
  Company Number: BE-JNJFOC-20120301080

PATIENT
  Sex: Female

DRUGS (1)
  1. XEPLION [Suspect]
     Indication: PRODUCT USED FOR UNKNOWN INDICATION
     Route: 030
     Dates: start: 20120214

REACTIONS (6)
  - HYPERGLYCAEMIA [None]
  - WEIGHT DECREASED [None]
  - DECREASED APPETITE [None]
  - VOMITING [None]
  - NAUSEA [None]
  - NERVOUSNESS [None]
